FAERS Safety Report 7382931-6 (Version None)
Quarter: 2011Q1

REPORT INFORMATION
  Report Type: 
  Country: None (occurrence: None)
  Receive Date: 20110330
  Receipt Date: 20100319
  Transmission Date: 20110831
  Serious: Yes (Death, Other)
  Sender: FDA-Public Use
  Company Number: US-BAYER-201016701NA

PATIENT
  Sex: Male
  Weight: 81.633 kg

DRUGS (1)
  1. TRASYLOL [Suspect]
     Indication: AORTIC SURGERY
     Route: 042
     Dates: start: 20051223

REACTIONS (4)
  - DEATH [None]
  - INJURY [None]
  - RENAL FAILURE [None]
  - PAIN [None]
